FAERS Safety Report 6679993-8 (Version None)
Quarter: 2010Q2

REPORT INFORMATION
  Report Type: 
  Country: None (occurrence: None)
  Receive Date: 20100413
  Receipt Date: 20100401
  Transmission Date: 20101027
  Serious: Yes (Hospitalization)
  Sender: FDA-Public Use
  Company Number: ES-ELI_LILLY_AND_COMPANY-ES201002001963

PATIENT
  Sex: Female
  Weight: 80 kg

DRUGS (7)
  1. FORTEO [Suspect]
     Indication: OSTEOPOROSIS
     Dosage: 20 UG, DAILY (1/D)
     Route: 058
     Dates: start: 20091211, end: 20100114
  2. LYRICA [Concomitant]
     Dosage: UNK, UNKNOWN
  3. SINTROM [Concomitant]
     Dosage: UNK, UNKNOWN
  4. TENOLIN [Concomitant]
     Dosage: UNK, UNKNOWN
  5. PANTOPRAZOLE SODIUM [Concomitant]
     Dosage: UNK, UNKNOWN
  6. NOLOTIL [Concomitant]
     Dosage: UNK, UNKNOWN
  7. GELOCATIL [Concomitant]
     Dosage: UNK, UNKNOWN

REACTIONS (2)
  - DEVICE RELATED INFECTION [None]
  - POST PROCEDURAL INFECTION [None]
